FAERS Safety Report 12754454 (Version 1)
Quarter: 2016Q3

REPORT INFORMATION
  Report Type: Spontaneous
  Country: US (occurrence: US)
  Receive Date: 20160915
  Receipt Date: 20160915
  Transmission Date: 20161109
  Serious: Yes (Other)
  Sender: FDA-Public Use
  Company Number: US-ASTELLAS-2016US021321

PATIENT
  Age: 90 Year
  Sex: Male

DRUGS (6)
  1. XTANDI [Suspect]
     Active Substance: ENZALUTAMIDE
     Dosage: 120MG, QOD ALTERNATING WITH 160 MG QOD
     Route: 048
     Dates: start: 20160617
  2. XTANDI [Suspect]
     Active Substance: ENZALUTAMIDE
     Route: 048
     Dates: start: 20160623
  3. XOFIGO [Concomitant]
     Active Substance: RADIUM RA-223 DICHLORIDE
     Indication: PRODUCT USED FOR UNKNOWN INDICATION
     Dosage: UNK UNK, UNKNOWN FREQ.
     Route: 065
  4. XTANDI [Suspect]
     Active Substance: ENZALUTAMIDE
     Indication: PROSTATE CANCER
     Route: 048
     Dates: start: 20160505
  5. XTANDI [Suspect]
     Active Substance: ENZALUTAMIDE
     Dosage: 120MG, QOD ALTERNATING WITH 160 MG QOD EVERY OTHER DAY
     Route: 048
  6. DEXAMETHASONE. [Concomitant]
     Active Substance: DEXAMETHASONE
     Indication: PRODUCT USED FOR UNKNOWN INDICATION
     Dosage: UNK UNK, UNKNOWN FREQ.
     Route: 065

REACTIONS (16)
  - Dizziness [Unknown]
  - Blood sodium decreased [Unknown]
  - Blood pressure increased [Unknown]
  - Haemorrhage [Unknown]
  - Confusional state [Unknown]
  - Underdose [Unknown]
  - Migraine [Unknown]
  - Limb injury [Unknown]
  - Fatigue [Unknown]
  - Communication disorder [Unknown]
  - Prostatic specific antigen increased [Unknown]
  - Headache [Unknown]
  - Confusional state [Recovered/Resolved]
  - Memory impairment [Unknown]
  - Peripheral swelling [Unknown]
  - Inappropriate schedule of drug administration [Unknown]

NARRATIVE: CASE EVENT DATE: 20160505
